FAERS Safety Report 9950000 (Version 1)
Quarter: 2014Q1

REPORT INFORMATION
  Report Type: Report from Study
  Country: US (occurrence: US)
  Receive Date: 20140304
  Receipt Date: 20140304
  Transmission Date: 20141002
  Serious: No
  Sender: FDA-Public Use
  Company Number: US-ABBVIE-13P-163-1067641-00

PATIENT
  Age: 47 Year
  Sex: Female

DRUGS (4)
  1. HUMIRA [Suspect]
     Indication: RHEUMATOID ARTHRITIS
  2. METHOTREXATE [Concomitant]
     Indication: RHEUMATOID ARTHRITIS
     Dosage: 9 TABLETS
     Route: 048
  3. METOPROLOL [Concomitant]
     Indication: HYPERTENSION
     Route: 048
  4. HYDROCHLOROT [Concomitant]
     Indication: BLOOD PRESSURE
     Dosage: IN AM
     Route: 048

REACTIONS (2)
  - Muscle spasticity [Unknown]
  - Heart rate increased [Not Recovered/Not Resolved]
